FAERS Safety Report 12107323 (Version 2)
Quarter: 2016Q1

REPORT INFORMATION
  Report Type: Spontaneous
  Country: FR (occurrence: FR)
  Receive Date: 20160223
  Receipt Date: 20160225
  Transmission Date: 20160526
  Serious: Yes (Other)
  Sender: FDA-Public Use
  Company Number: PHHY2016FR022756

PATIENT
  Age: 56 Year
  Sex: Male

DRUGS (2)
  1. TEGRETOL [Suspect]
     Active Substance: CARBAMAZEPINE
     Dosage: 18 DF, UNK
     Route: 048
     Dates: start: 20151108, end: 20151108
  2. TEGRETOL [Suspect]
     Active Substance: CARBAMAZEPINE
     Indication: EPILEPSY
     Dosage: UNK
     Route: 048

REACTIONS (2)
  - Suicide attempt [Recovered/Resolved]
  - Cerebellar syndrome [Unknown]

NARRATIVE: CASE EVENT DATE: 20151108
